FAERS Safety Report 6691884-5 (Version None)
Quarter: 2010Q2

REPORT INFORMATION
  Report Type: 
  Country: None (occurrence: None)
  Receive Date: 20100422
  Receipt Date: 20091015
  Transmission Date: 20101027
  Serious: No
  Sender: FDA-Public Use
  Company Number: US-ASTRAZENECA-2009SE20397

PATIENT
  Age: 72 Year
  Sex: Male
  Weight: 72.6 kg

DRUGS (4)
  1. TOPROL-XL [Suspect]
     Route: 048
  2. LIPITOR [Concomitant]
     Indication: BLOOD CHOLESTEROL
  3. COUMADIN [Concomitant]
     Indication: CARDIAC DISORDER
  4. ASPIRIN [Concomitant]
     Indication: CARDIAC DISORDER

REACTIONS (3)
  - DYSPNOEA [None]
  - GENERAL PHYSICAL CONDITION ABNORMAL [None]
  - HEART RATE INCREASED [None]
